FAERS Safety Report 6642178-5 (Version None)
Quarter: 2010Q1

REPORT INFORMATION
  Report Type: 
  Country: None (occurrence: None)
  Receive Date: 20100319
  Receipt Date: 20100308
  Transmission Date: 20100710
  Serious: Yes (Hospitalization)
  Sender: FDA-Public Use
  Company Number: IT-PFIZER INC-2010011507

PATIENT
  Age: 81 Year
  Sex: Male

DRUGS (1)
  1. MISOFENAC [Suspect]
     Dosage: 75 MG, TOTAL
     Route: 048
     Dates: start: 20091221, end: 20091221

REACTIONS (1)
  - TONGUE OEDEMA [None]
